FAERS Safety Report 7769007-0 (Version None)
Quarter: 2011Q3

REPORT INFORMATION
  Report Type: 
  Country: None (occurrence: None)
  Receive Date: 20110922
  Receipt Date: 20110711
  Transmission Date: 20111222
  Serious: No
  Sender: FDA-Public Use
  Company Number: US-ASTRAZENECA-2011SE41435

PATIENT
  Age: 67 Year
  Sex: Female
  Weight: 77.1 kg

DRUGS (9)
  1. SEROQUEL XR [Suspect]
     Indication: NIGHTMARE
     Route: 048
     Dates: end: 20110601
  2. SIMVASTATIN [Concomitant]
  3. SEROQUEL XR [Suspect]
     Indication: MAJOR DEPRESSION
     Route: 048
     Dates: end: 20110601
  4. SEROQUEL XR [Suspect]
     Indication: BIPOLAR DISORDER
     Route: 048
     Dates: end: 20110601
  5. TRILIPIX [Concomitant]
  6. PLAVIX [Concomitant]
  7. METFORMIN [Concomitant]
  8. SEROQUEL XR [Suspect]
     Indication: ANXIETY
     Route: 048
     Dates: end: 20110601
  9. SYNTHROID [Concomitant]

REACTIONS (5)
  - HEADACHE [None]
  - DRUG PRESCRIBING ERROR [None]
  - NAUSEA [None]
  - NERVOUSNESS [None]
  - DRUG DOSE OMISSION [None]
